FAERS Safety Report 14290992 (Version 7)
Quarter: 2018Q1

REPORT INFORMATION
  Report Type: Report from Study
  Country: DE (occurrence: DE)
  Receive Date: 20171215
  Receipt Date: 20180323
  Transmission Date: 20180509
  Serious: Yes (Hospitalization, Other)
  Sender: FDA-Public Use
  Company Number: DE-PFIZER INC-2017527789

PATIENT
  Age: 59 Year
  Sex: Female
  Weight: 83.9 kg

DRUGS (15)
  1. AVASTIN [Suspect]
     Active Substance: BEVACIZUMAB
     Dosage: 375 MG, UNK
     Route: 042
     Dates: start: 20151005, end: 20151019
  2. FOLINIC ACID /00566702/ [Concomitant]
     Active Substance: LEUCOVORIN CALCIUM
     Dosage: 740 MG, UNK
     Route: 042
     Dates: start: 20150831, end: 20150831
  3. SULFASALAZINE DELAYED-RELEASE [Concomitant]
     Active Substance: SULFASALAZINE
     Indication: ARTHRITIS
     Dosage: 1000 MG, 1X/DAY
     Route: 048
  4. IRINOTECAN HCL [Suspect]
     Active Substance: IRINOTECAN HYDROCHLORIDE
     Indication: COLORECTAL CANCER
     Dosage: 340 MG, UNK
     Route: 042
     Dates: start: 20150706, end: 20150706
  5. 5-FLUOROURACIL [Suspect]
     Active Substance: FLUOROURACIL
     Indication: COLORECTAL CANCER
     Dosage: UNK
     Dates: start: 20150706, end: 20150902
  6. FOLINIC ACID /00566702/ [Concomitant]
     Active Substance: LEUCOVORIN CALCIUM
     Indication: COLORECTAL CANCER
     Dosage: 750 MG, UNK
     Route: 042
     Dates: start: 20150706, end: 20150706
  7. PANTOPRAZOL [Concomitant]
     Active Substance: PANTOPRAZOLE SODIUM
     Indication: ARTHRITIS
     Dosage: 40 MG, 1X/DAY
     Route: 048
  8. IRINOTECAN HCL [Suspect]
     Active Substance: IRINOTECAN HYDROCHLORIDE
     Dosage: 340 MG, UNK
     Route: 042
     Dates: start: 20150831, end: 20150831
  9. 5-FLUOROURACIL [Concomitant]
     Active Substance: FLUOROURACIL
     Indication: COLORECTAL CANCER
     Dosage: 750 MG, 2X/WEEK
     Route: 040
     Dates: start: 20150706, end: 20150706
  10. 5-FLUOROURACIL [Concomitant]
     Active Substance: FLUOROURACIL
     Dosage: 2250 MG, UNK
     Route: 041
     Dates: start: 20150706, end: 20150708
  11. AVASTIN [Suspect]
     Active Substance: BEVACIZUMAB
     Indication: COLORECTAL CANCER
     Dosage: 400 MG, UNK
     Route: 042
     Dates: start: 20150706, end: 20150706
  12. 5-FLUOROURACIL [Concomitant]
     Active Substance: FLUOROURACIL
     Dosage: 2225 MG, 2X/WEEK, INFUSION
     Route: 041
     Dates: start: 20150831, end: 20150902
  13. PREDNISOLONE. [Concomitant]
     Active Substance: PREDNISOLONE
     Indication: ARTHRITIS
     Dosage: 5 MG, 1X/DAY
     Route: 048
  14. COLECALCIFEROL [Concomitant]
     Active Substance: CHOLECALCIFEROL
     Indication: ARTHRITIS
     Dosage: 20000 IU, WEEKLY
     Route: 048
  15. AVASTIN [Suspect]
     Active Substance: BEVACIZUMAB
     Dosage: 400 MG, UNK
     Route: 042
     Dates: start: 20150831, end: 20150831

REACTIONS (5)
  - Hypertension [Recovering/Resolving]
  - Neutropenia [Recovered/Resolved]
  - Leukopenia [Recovering/Resolving]
  - Urinary tract infection [Recovered/Resolved]
  - Pulmonary embolism [Recovered/Resolved]

NARRATIVE: CASE EVENT DATE: 20150706
